FAERS Safety Report 7640519-3 (Version None)
Quarter: 2011Q3

REPORT INFORMATION
  Report Type: 
  Country: None (occurrence: None)
  Receive Date: 20110728
  Receipt Date: 20110718
  Transmission Date: 20111222
  Serious: No
  Sender: FDA-Public Use
  Company Number: US-BIOGENIDEC-2011BI026951

PATIENT
  Age: 47 Year
  Sex: Female

DRUGS (1)
  1. TYSABRI [Suspect]
     Indication: MULTIPLE SCLEROSIS
     Route: 042
     Dates: start: 20110101

REACTIONS (6)
  - PERSONALITY DISORDER [None]
  - AGITATION [None]
  - DRUG INEFFECTIVE [None]
  - COGNITIVE DISORDER [None]
  - ANXIETY [None]
  - RASH [None]
